FAERS Safety Report 4313671-5 (Version None)
Quarter: 2004Q1

REPORT INFORMATION
  Report Type: 
  Country: None (occurrence: None)
  Receive Date: 20040308
  Receipt Date: 20040208
  Transmission Date: 20041129
  Serious: Yes (Other)
  Sender: FDA-Public Use
  Company Number: PHBS2004BR01969

PATIENT
  Age: 24 Year
  Sex: Male
  Weight: 85 kg

DRUGS (4)
  1. RITALINA [Suspect]
     Indication: ATTENTION DEFICIT/HYPERACTIVITY DISORDER
     Dosage: 1 TABLET, BID
     Route: 048
     Dates: start: 20030101
  2. RITALINA [Suspect]
     Dosage: 1 TABLET/DAY
     Route: 048
  3. RITALINA [Suspect]
     Dosage: 3 TABLETS/DAY
     Route: 048
     Dates: start: 20040204
  4. RITALINA [Suspect]
     Dosage: 2 TABLETS/DAY
     Route: 048

REACTIONS (4)
  - AGGRESSION [None]
  - DEPRESSION [None]
  - DIZZINESS [None]
  - IRRITABILITY [None]
